FAERS Safety Report 23646985 (Version 2)
Quarter: 2024Q2

REPORT INFORMATION
  Report Type: Spontaneous
  Country: GB (occurrence: GB)
  Receive Date: 20240319
  Receipt Date: 20240503
  Transmission Date: 20240716
  Serious: Yes (Other)
  Sender: FDA-Public Use
  Company Number: None

PATIENT
  Age: 75 Year
  Sex: Female

DRUGS (23)
  1. METHOTREXATE [Suspect]
     Active Substance: METHOTREXATE
     Indication: Product used for unknown indication
  2. CALCIUM CARBONATE\CHOLECALCIFEROL [Concomitant]
     Active Substance: CALCIUM CARBONATE\CHOLECALCIFEROL
  3. MORPHINE SULFATE [Concomitant]
     Active Substance: MORPHINE SULFATE
     Indication: Pain
     Dosage: 1.25-2.5ML EVERY 4-6 HRS FOR BREAKTHROUGH PAIN 100 ML
     Route: 048
  4. ALENDRONIC ACID [Concomitant]
     Active Substance: ALENDRONIC ACID
     Dosage: ON WEDNESDAY
  5. BISOPROLOL [Concomitant]
     Active Substance: BISOPROLOL\BISOPROLOL FUMARATE
     Dosage: EACH MORNING
  6. FOLIC ACID [Concomitant]
     Active Substance: FOLIC ACID
     Dates: end: 202303
  7. CHOLESTYRAMINE [Concomitant]
     Active Substance: CHOLESTYRAMINE
     Dosage: 1 SACHET TWICE A DAY
     Route: 048
  8. CODEINE [Concomitant]
     Active Substance: CODEINE
     Dosage: ONE OR TWO TO BE TAKEN EVERY FOUR HOURS WHEN NECESSARY
  9. CARBOXYMETHYLCELLULOSE SODIUM [Concomitant]
     Active Substance: CARBOXYMETHYLCELLULOSE SODIUM
     Dosage: EACH EYE
  10. LEVOTHYROXINE [Concomitant]
     Active Substance: LEVOTHYROXINE\LEVOTHYROXINE SODIUM
     Dosage: ON ALTERNATE DAYS
  11. ACETAMINOPHEN [Concomitant]
     Active Substance: ACETAMINOPHEN
     Dosage: 500MG. TWO, FOUR TIMES A DAY. PATIENT STATES TAKING PRN
  12. LOSARTAN [Concomitant]
     Active Substance: LOSARTAN
     Dosage: PATIENT STATES NOT TAKING PRIOR TO ADMISSION (STOPPED 06/23) - NOTE?HYPERTENSIVE SO LEFT ON
     Dates: end: 202306
  13. CHLORPHENIRAMINE MALEATE [Concomitant]
     Active Substance: CHLORPHENIRAMINE MALEATE
     Dosage: AT NIGHT. PATIENT STATES TAKING PRIOR TO ADMISSION
  14. FELODIPINE [Concomitant]
     Active Substance: FELODIPINE
     Dosage: EACH MORNING
     Dates: start: 20230426
  15. LORATADINE [Concomitant]
     Active Substance: LORATADINE
     Dosage: PATIENT STATES NOT TAKING PRIOR TO ADMISSION
  16. PREDNISONE [Concomitant]
     Active Substance: PREDNISONE
     Dosage: COURSE FINISHED
  17. METOCLOPRAMIDE [Concomitant]
     Active Substance: METOCLOPRAMIDE
     Dosage: PATIENT STATES TAKING PRN, 10MG THREE TIMES A DAY
  18. LANSOPRAZOLE [Concomitant]
     Active Substance: LANSOPRAZOLE
  19. CALCIUM\CARBOXYMETHYLCELLULOSE\DEVICE\MAGNESIUM\POTASSIUM\SODIUM CL\SO [Concomitant]
     Active Substance: CALCIUM\CARBOXYMETHYLCELLULOSE\DEVICE\MAGNESIUM\POTASSIUM\SODIUM CL\SORBITOL
     Dosage: TO BE USED WHEN REQUIRED 50 ML - PATIENT STATES USING PRIOR TO ADMISSION
     Dates: start: 20230627
  20. CHOLECALCIFEROL [Concomitant]
     Active Substance: CHOLECALCIFEROL
  21. CALCIUM CARBONATE [Concomitant]
     Active Substance: CALCIUM CARBONATE
  22. PREDNISOLONE [Concomitant]
     Active Substance: PREDNISOLONE
     Dosage: PATIENT STATES COURSE FINISHED
  23. LEVOTHYROXINE [Concomitant]
     Active Substance: LEVOTHYROXINE\LEVOTHYROXINE SODIUM
     Dosage: ON ALTERNATE DAYS

REACTIONS (1)
  - Hepatic steatosis [Unknown]
